FAERS Safety Report 6575802-6 (Version None)
Quarter: 2010Q1

REPORT INFORMATION
  Report Type: 
  Country: None (occurrence: None)
  Receive Date: 20100202
  Receipt Date: 20100118
  Transmission Date: 20100710
  Serious: Yes (Other)
  Sender: FDA-Public Use
  Company Number: 2010S1000284

PATIENT
  Age: 58 Year
  Sex: Male

DRUGS (1)
  1. PHOSPHOSODA FLAVOR NOT SPECIFIED [Suspect]
     Indication: COLONOSCOPY
     Dosage: ; PO
     Route: 048
     Dates: start: 20040829, end: 20040831

REACTIONS (4)
  - BLOOD PRESSURE DECREASED [None]
  - CEREBRAL ISCHAEMIA [None]
  - DIZZINESS [None]
  - RENAL INJURY [None]
